FAERS Safety Report 4654414-5 (Version None)
Quarter: 2005Q2

REPORT INFORMATION
  Report Type: 
  Country: None (occurrence: None)
  Receive Date: 20050504
  Receipt Date: 20050421
  Transmission Date: 20051028
  Serious: Yes (Other)
  Sender: FDA-Public Use
  Company Number: A-CH2005-09540

PATIENT
  Age: 82 Year
  Sex: Male

DRUGS (8)
  1. TRACLEER [Suspect]
     Indication: PULMONARY HYPERTENSION
     Dosage: 62.5 MG, BID, ORAL
     Route: 048
     Dates: start: 20050331
  2. SINTROM [Concomitant]
  3. DIGOXIN [Concomitant]
  4. LASIX [Concomitant]
  5. ALDACTONE [Concomitant]
  6. PULMICORT [Concomitant]
  7. ATROVENT (IRPRATROPIUM BROMIDE) [Concomitant]
  8. ZINACEF [Concomitant]

REACTIONS (3)
  - EPISTAXIS [None]
  - ILEUS [None]
  - OFF LABEL USE [None]
